FAERS Safety Report 13084580 (Version 4)
Quarter: 2017Q2

REPORT INFORMATION
  Report Type: Report from Study
  Country: CA (occurrence: CA)
  Receive Date: 20170104
  Receipt Date: 20170628
  Transmission Date: 20170830
  Serious: Yes (Hospitalization)
  Sender: FDA-Public Use
  Company Number: CA-APOPHARMA-2016AP013512

PATIENT
  Sex: Female
  Weight: 58 kg

DRUGS (1)
  1. FERRIPROX [Suspect]
     Active Substance: DEFERIPRONE
     Indication: PYRUVATE KINASE DEFICIENCY ANAEMIA
     Dosage: 29 MG/KG, TID
     Route: 048
     Dates: start: 20160404, end: 20161018

REACTIONS (3)
  - Surgery [Recovered/Resolved]
  - Back disorder [Recovering/Resolving]
  - Gait disturbance [Recovering/Resolving]
